FAERS Safety Report 6882418-0 (Version None)
Quarter: 2010Q3

REPORT INFORMATION
  Report Type: 
  Country: None (occurrence: None)
  Receive Date: 20100728
  Receipt Date: 20100728
  Transmission Date: 20110219
  Serious: Yes (Hospitalization)
  Sender: FDA-Public Use
  Company Number: None

PATIENT
  Sex: Male
  Weight: 110.7 kg

DRUGS (3)
  1. OXALIPLATIN [Suspect]
     Indication: MALIGNANT HEPATOBILIARY NEOPLASM
     Dosage: IV, 48 MG/M^2 (107MG)
     Route: 042
     Dates: end: 20100618
  2. SORAFENIB [Suspect]
     Dosage: 200 MG PO QOD
     Route: 048
     Dates: end: 20100620
  3. CAPECITABINE [Concomitant]

REACTIONS (2)
  - NEPHROPATHY TOXIC [None]
  - RENAL FAILURE [None]
